FAERS Safety Report 21045443 (Version 1)
Quarter: 2022Q3

REPORT INFORMATION
  Report Type: Spontaneous
  Country: JP (occurrence: JP)
  Receive Date: 20220706
  Receipt Date: 20220706
  Transmission Date: 20221026
  Serious: Yes (Hospitalization, Other)
  Sender: FDA-Public Use
  Company Number: JP-ASTELLAS-2019US040465

PATIENT
  Age: 68 Year
  Sex: Male

DRUGS (17)
  1. BENDAMUSTINE HYDROCHLORIDE [Suspect]
     Active Substance: BENDAMUSTINE HYDROCHLORIDE
     Indication: Mantle cell lymphoma
     Dosage: 90 MG/M2X1/DAY, CYCLIC (1ST CYCLE)
     Route: 042
     Dates: start: 20190123, end: 20190124
  2. BENDAMUSTINE HYDROCHLORIDE [Suspect]
     Active Substance: BENDAMUSTINE HYDROCHLORIDE
     Dosage: 90 MG/M2X1/DAY, CYCLIC (2ND CYCLE)
     Route: 042
     Dates: start: 20190220, end: 20190221
  3. BENDAMUSTINE HYDROCHLORIDE [Suspect]
     Active Substance: BENDAMUSTINE HYDROCHLORIDE
     Dosage: 90 MG/M2X1/DAY, CYCLIC (3RD CYCLE)
     Route: 042
     Dates: start: 20190325, end: 20190326
  4. BENDAMUSTINE HYDROCHLORIDE [Suspect]
     Active Substance: BENDAMUSTINE HYDROCHLORIDE
     Dosage: 90 MG/M2X1/DAY, CYCLIC (4TH CYCLE)
     Route: 042
     Dates: start: 20190417, end: 20190418
  5. RITUXIMAB [Suspect]
     Active Substance: RITUXIMAB
     Indication: Mantle cell lymphoma
     Dosage: 375 MG/M2X1/DAY, CYCLIC (1ST CYCLE)
     Route: 041
     Dates: start: 20190122
  6. RITUXIMAB [Suspect]
     Active Substance: RITUXIMAB
     Dosage: 375 MG/M2X1/DAY, CYCLIC (2ND CYCLE)
     Route: 041
     Dates: start: 20190218
  7. RITUXIMAB [Suspect]
     Active Substance: RITUXIMAB
     Dosage: 375 MG/M2X1/DAY, CYCLIC (3RD CYCLE)
     Route: 041
     Dates: start: 20190318
  8. RITUXIMAB [Suspect]
     Active Substance: RITUXIMAB
     Dosage: 375 MG/M2X1/DAY, CYCLIC (4TH CYCLE)
     Route: 041
     Dates: start: 20190415
  9. RITUXIMAB [Suspect]
     Active Substance: RITUXIMAB
     Dosage: 375 MG/M2X1/DAY, CYCLIC (5TH CYCLE)
     Route: 041
     Dates: start: 20190520
  10. DEXAMETHASONE SODIUM PHOSPHATE [Concomitant]
     Active Substance: DEXAMETHASONE SODIUM PHOSPHATE
     Indication: Vomiting
     Dosage: 6.6 MILLIGRAM DAILY;
     Route: 041
     Dates: start: 20190123, end: 20190124
  11. DEXAMETHASONE SODIUM PHOSPHATE [Concomitant]
     Active Substance: DEXAMETHASONE SODIUM PHOSPHATE
     Dosage: 6.6 MILLIGRAM DAILY;
     Route: 041
     Dates: start: 20190220, end: 20190221
  12. DEXAMETHASONE SODIUM PHOSPHATE [Concomitant]
     Active Substance: DEXAMETHASONE SODIUM PHOSPHATE
     Dosage: 6.6 MILLIGRAM DAILY;
     Route: 041
     Dates: start: 20190325, end: 20190326
  13. DEXAMETHASONE SODIUM PHOSPHATE [Concomitant]
     Active Substance: DEXAMETHASONE SODIUM PHOSPHATE
     Dosage: 6.6 MILLIGRAM DAILY;
     Route: 041
     Dates: start: 20190417, end: 20190418
  14. GRANISETRON HYDROCHLORIDE [Concomitant]
     Active Substance: GRANISETRON HYDROCHLORIDE
     Indication: Vomiting
     Dosage: 3 MILLIGRAM DAILY;
     Route: 041
     Dates: start: 20190123, end: 20190124
  15. GRANISETRON HYDROCHLORIDE [Concomitant]
     Active Substance: GRANISETRON HYDROCHLORIDE
     Dosage: 3 MILLIGRAM DAILY;
     Route: 041
     Dates: start: 20190220, end: 20190221
  16. GRANISETRON HYDROCHLORIDE [Concomitant]
     Active Substance: GRANISETRON HYDROCHLORIDE
     Dosage: 3 MILLIGRAM DAILY;
     Route: 041
     Dates: start: 20190325, end: 20190326
  17. GRANISETRON HYDROCHLORIDE [Concomitant]
     Active Substance: GRANISETRON HYDROCHLORIDE
     Dosage: 3 MILLIGRAM DAILY;
     Route: 041
     Dates: start: 20190417, end: 20190418

REACTIONS (4)
  - Liver disorder [Recovered/Resolved]
  - Cytomegalovirus infection [Not Recovered/Not Resolved]
  - Bacterial infection [Recovered/Resolved]
  - Neutrophil count decreased [Unknown]

NARRATIVE: CASE EVENT DATE: 20190501
